FAERS Safety Report 8470479-7 (Version None)
Quarter: 2012Q2

REPORT INFORMATION
  Report Type: 
  Country: None (occurrence: None)
  Receive Date: 20120323
  Receipt Date: 20111012
  Transmission Date: 20120825
  Serious: Yes (Hospitalization)
  Sender: FDA-Public Use
  Company Number: 163-21880-11101360

PATIENT
  Age: 76 Year
  Sex: Female

DRUGS (9)
  1. LENALIDOMIDE [Suspect]
     Indication: MULTIPLE MYELOMA
     Dosage: 10 MG, X 21 CAPS, PO
     Route: 048
     Dates: start: 20101201
  2. DEXAMETHASONE [Concomitant]
  3. CYANOCOBALAMIN (CYANOCOBALAMIN) (UNKNOWN) [Concomitant]
  4. LIPITOR [Concomitant]
  5. BYSTOLIC (NEBIVOLOL HYDROCHLORIDE) (UNKNOWN) [Concomitant]
  6. FOLIC ACID (FOLIC ACID) (UNKNOWN) [Concomitant]
  7. CALCIUM - VITAMIN D3 (LEKOVIT CA) (UNKNOWN) [Concomitant]
  8. SINGULAIR (MONTELUKAST SODIUM) (UNKNOWN) [Concomitant]
  9. INDAPAMIDE (INDAPAMIDE) (UNKNOWN) [Concomitant]

REACTIONS (1)
  - INFECTION [None]
